FAERS Safety Report 8005535-0 (Version None)
Quarter: 2011Q4

REPORT INFORMATION
  Report Type: 
  Country: None (occurrence: None)
  Receive Date: 20111223
  Receipt Date: 20111209
  Transmission Date: 20120403
  Serious: Yes (Hospitalization)
  Sender: FDA-Public Use
  Company Number: JP-ROCHE-780794

PATIENT
  Sex: Female

DRUGS (11)
  1. STRONGER NEO-MINOPHAGEN C [Concomitant]
     Dosage: 40 ML, QD
     Route: 042
     Dates: start: 20110422, end: 20110511
  2. FLUCONAZOLE [Concomitant]
  3. CLOBETASOL PROPIONATE [Concomitant]
     Indication: RASH MACULO-PAPULAR
     Dosage: UNK
     Route: 061
     Dates: start: 20110403, end: 20110601
  4. SULFAMETHOXAZOLE AND TRIMETHOPRIM [Concomitant]
     Indication: INFECTION PROPHYLAXIS
     Route: 048
  5. LANSOPRAZOLE [Concomitant]
     Indication: GASTRITIS
     Route: 048
  6. STRONGER NEO-MINOPHAGEN C [Concomitant]
     Indication: LIVER DISORDER
     Dosage: 40 ML, QD
     Route: 042
     Dates: start: 20110422, end: 20110511
  7. AMLODIPINE [Concomitant]
     Indication: HYPERTENSION
  8. ZOVIRAX [Concomitant]
     Indication: HERPES ZOSTER
     Dosage: 200 MG, BID
     Route: 048
  9. MABTHERA [Suspect]
     Indication: LYMPHOMA
     Dosage: 510 MG, UNK
     Route: 042
     Dates: start: 20110322, end: 20110414
  10. BENDAMUSTINE HYDROCHLORIDE [Suspect]
     Indication: LYMPHOMA
     Dosage: 160 MG, UNK
     Route: 042
     Dates: start: 20110322, end: 20110414
  11. ALLOPURINOL [Concomitant]
     Indication: HYPERURICAEMIA
     Route: 048

REACTIONS (10)
  - CYTOMEGALOVIRUS HEPATITIS [None]
  - LIVER DISORDER [None]
  - RASH MACULO-PAPULAR [None]
  - MALAISE [None]
  - CYTOMEGALOVIRUS INFECTION [None]
  - ASPARTATE AMINOTRANSFERASE INCREASED [None]
  - WHITE BLOOD CELL COUNT DECREASED [None]
  - ALANINE AMINOTRANSFERASE INCREASED [None]
  - NEUTROPHIL PERCENTAGE INCREASED [None]
  - BLOOD ALKALINE PHOSPHATASE INCREASED [None]
